FAERS Safety Report 8960292 (Version 1)
Quarter: 2012Q4

REPORT INFORMATION
  Report Type: 
  Country: JP (occurrence: JP)
  Receive Date: 20121211
  Receipt Date: 20121211
  Transmission Date: 20130627
  Serious: Yes (Other)
  Sender: FDA-Public Use
  Company Number: PHHY2012JP113254

PATIENT
  Age: 57 Year
  Sex: Female

DRUGS (2)
  1. FLUDARABINE [Suspect]
     Indication: T-CELL PROLYMPHOCYTIC LEUKAEMIA
     Dosage: 25 mg/m2, per day
     Dates: start: 200202
  2. FLUDARABINE [Suspect]
     Dosage: 25 mg/m2, per day
     Dates: start: 200909

REACTIONS (3)
  - Hodgkin^s disease [Unknown]
  - Lymphadenopathy [Recovering/Resolving]
  - Chest discomfort [Unknown]
